FAERS Safety Report 5070358-1 (Version None)
Quarter: 2006Q3

REPORT INFORMATION
  Report Type: 
  Country: None (occurrence: None)
  Receive Date: 20060731
  Receipt Date: 20060721
  Transmission Date: 20061208
  Serious: Yes (Other)
  Sender: FDA-Public Use
  Company Number: 200613096GDS

PATIENT
  Age: 67 Year
  Sex: Female

DRUGS (2)
  1. ASPIRIN [Suspect]
     Indication: DRUG USE FOR UNKNOWN INDICATION
  2. WARFARIN SODIUM [Suspect]
     Indication: DRUG USE FOR UNKNOWN INDICATION

REACTIONS (6)
  - COLONIC HAEMATOMA [None]
  - COLONIC STENOSIS [None]
  - CONSTIPATION [None]
  - GASTROINTESTINAL MUCOSAL DISORDER [None]
  - MELAENA [None]
  - MUCOSAL EXCORIATION [None]
